FAERS Safety Report 20028908 (Version 2)
Quarter: 2021Q4

REPORT INFORMATION
  Report Type: Spontaneous
  Country: JP (occurrence: JP)
  Receive Date: 20211103
  Receipt Date: 20211110
  Transmission Date: 20220304
  Serious: Yes (Other)
  Sender: FDA-Public Use
  Company Number: JP-ferring-EVA202101680FERRINGPH

PATIENT
  Age: 81 Year
  Sex: Male

DRUGS (6)
  1. DESMOPRESSIN ACETATE [Suspect]
     Active Substance: DESMOPRESSIN ACETATE
     Indication: Nocturia
     Dosage: 25 UG
     Route: 065
  2. SILODOSIN [Concomitant]
     Active Substance: SILODOSIN
     Dosage: 2 MG
     Route: 065
  3. FEBUXOSTAT [Concomitant]
     Active Substance: FEBUXOSTAT
     Dosage: 10 MG
     Route: 065
  4. FLECAINIDE ACETATE [Concomitant]
     Active Substance: FLECAINIDE ACETATE
     Dosage: 100 MG
     Route: 065
  5. MIROGABALIN BESILATE [Concomitant]
     Route: 065
  6. METHYLCOBALAMIN [Concomitant]
     Active Substance: METHYLCOBALAMIN
     Route: 065

REACTIONS (4)
  - Blood pressure systolic increased [Recovered/Resolved]
  - Hyponatraemia [Recovered/Resolved]
  - Headache [Unknown]
  - Oedema peripheral [Unknown]
